FAERS Safety Report 8758165 (Version 1)
Quarter: 2012Q4

REPORT INFORMATION
  Report Type: 
  Country: US (occurrence: US)
  Receive Date: 20120828
  Receipt Date: 20120828
  Transmission Date: 20130627
  Serious: Yes (Other)
  Sender: FDA-Public Use
  Company Number: CHPA2012US018595

PATIENT
  Age: 79 Year
  Sex: Male

DRUGS (1)
  1. BENEFIBER STICK PACKS [Suspect]
     Indication: BOWEL MOVEMENT IRREGULARITY
     Dosage: 1 DF, PRN
     Route: 048
     Dates: start: 201205

REACTIONS (4)
  - Hiatus hernia [Recovered/Resolved]
  - Gastric infection [Recovered/Resolved]
  - Constipation [Unknown]
  - Off label use [Unknown]
